FAERS Safety Report 21973710 (Version 1)
Quarter: 2023Q1

REPORT INFORMATION
  Report Type: Spontaneous
  Country: PR (occurrence: PR)
  Receive Date: 20230209
  Receipt Date: 20230209
  Transmission Date: 20230418
  Serious: Yes (Other)
  Sender: FDA-Public Use
  Company Number: PR-JNJFOC-20230165300

PATIENT

DRUGS (2)
  1. ZAVESCA [Suspect]
     Active Substance: MIGLUSTAT
     Indication: Niemann-Pick disease
     Dosage: TAKE ONE CAPSULE BY ORAL ROUTE ONCE DAILY FOR 2 WEEKS THEN BID FOR 60 DAYS
     Route: 048
  2. LACTULOSE [Concomitant]
     Active Substance: LACTULOSE

REACTIONS (7)
  - Neurodegenerative disorder [Unknown]
  - Epilepsy [Unknown]
  - Hepatic encephalopathy [Unknown]
  - Gait disturbance [Unknown]
  - Hepato-lenticular degeneration [Unknown]
  - Obstructive sleep apnoea syndrome [Unknown]
  - Liver disorder [Unknown]
